FAERS Safety Report 11383161 (Version 1)
Quarter: 2015Q3

REPORT INFORMATION
  Report Type: Spontaneous
  Country: US (occurrence: US)
  Receive Date: 20150814
  Receipt Date: 20150814
  Transmission Date: 20151125
  Serious: No
  Sender: FDA-Public Use
  Company Number: US-VIVUS-2015V1000240

PATIENT
  Sex: Female
  Weight: 90.8 kg

DRUGS (5)
  1. LIOTHYRONINE [Concomitant]
     Active Substance: LIOTHYRONINE
     Indication: HYPOTHYROIDISM
     Route: 048
     Dates: start: 201501
  2. QSYMIA [Suspect]
     Active Substance: PHENTERMINE HYDROCHLORIDE\TOPIRAMATE
     Indication: WEIGHT DECREASED
     Route: 048
     Dates: start: 2014, end: 2014
  3. QSYMIA [Suspect]
     Active Substance: PHENTERMINE HYDROCHLORIDE\TOPIRAMATE
     Indication: WEIGHT DECREASED
     Route: 048
     Dates: start: 2014, end: 2014
  4. TRAMADOL. [Concomitant]
     Active Substance: TRAMADOL
     Indication: PAIN
     Dosage: 4-5 TIMES DAILY
     Route: 048
     Dates: start: 2013
  5. LEVOTHYROXINE. [Concomitant]
     Active Substance: LEVOTHYROXINE
     Indication: HYPOTHYROIDISM
     Route: 048
     Dates: start: 2007

REACTIONS (4)
  - Palpitations [Recovered/Resolved]
  - Insomnia [Recovered/Resolved]
  - Blood pressure increased [Recovered/Resolved]
  - Tooth disorder [Recovered/Resolved]

NARRATIVE: CASE EVENT DATE: 2014
